FAERS Safety Report 12661569 (Version 1)
Quarter: 2016Q3

REPORT INFORMATION
  Report Type: Spontaneous
  Country: US (occurrence: US)
  Receive Date: 20160817
  Receipt Date: 20160817
  Transmission Date: 20161109
  Serious: No
  Sender: FDA-Public Use
  Company Number: US-PFIZER INC-2016379731

PATIENT
  Sex: Female

DRUGS (1)
  1. ADVIL PM [Suspect]
     Active Substance: DIPHENHYDRAMINE CITRATE\IBUPROFEN
     Dates: start: 20160808

REACTIONS (3)
  - Swelling [Unknown]
  - Erythema [Unknown]
  - Throat tightness [Unknown]

NARRATIVE: CASE EVENT DATE: 20160808
